FAERS Safety Report 20412279 (Version 3)
Quarter: 2022Q1

REPORT INFORMATION
  Report Type: Spontaneous
  Country: US (occurrence: US)
  Receive Date: 20220201
  Receipt Date: 20220327
  Transmission Date: 20220424
  Serious: No
  Sender: FDA-Public Use
  Company Number: US-SA-SAC20220128000790

PATIENT
  Sex: Female

DRUGS (2)
  1. KEVZARA [Suspect]
     Active Substance: SARILUMAB
     Indication: Rheumatoid arthritis
     Dosage: 150 MG, QOW
     Dates: start: 202106
  2. KEVZARA [Suspect]
     Active Substance: SARILUMAB
     Dosage: 200 MG, QOW
     Route: 058
     Dates: start: 202108

REACTIONS (8)
  - Eye pain [Unknown]
  - Headache [Unknown]
  - Vision blurred [Unknown]
  - Abdominal pain upper [Unknown]
  - Blister [Not Recovered/Not Resolved]
  - Eye infection [Not Recovered/Not Resolved]
  - Dysphonia [Not Recovered/Not Resolved]
  - Pruritus [Not Recovered/Not Resolved]
